FAERS Safety Report 9240371 (Version 1)
Quarter: 2013Q2

REPORT INFORMATION
  Report Type: Spontaneous
  Country: FR (occurrence: None)
  Receive Date: 20130417
  Receipt Date: 20130417
  Transmission Date: 20140414
  Serious: Yes (Other)
  Sender: FDA-Public Use
  Company Number: AUR-APL-2013-02917

PATIENT
  Age: 62 Year
  Sex: Female

DRUGS (4)
  1. SERTRALINE (SERTRALINE) (SERTRALINE) [Suspect]
     Indication: MAJOR DEPRESSION
     Dosage: 1 MG, 1 D
  2. RASAGILINE [Suspect]
     Indication: PARKINSON^S DISEASE
     Dosage: 1 MG, 1 D
  3. AMANTADINE [Suspect]
     Indication: PARKINSON^S DISEASE
     Dosage: 100 MG, 2 IN 1 D
  4. CARBIDOPA W/ENTACAPONE W/LEVODOPA [Suspect]
     Indication: PARKINSON^S DISEASE

REACTIONS (16)
  - Major depression [None]
  - Agitation [None]
  - Delusion [None]
  - Altered state of consciousness [None]
  - Hyperhidrosis [None]
  - Hyperthermia [None]
  - Blood pressure fluctuation [None]
  - Myoclonus [None]
  - Muscle rigidity [None]
  - Hyperreflexia [None]
  - Rhabdomyolysis [None]
  - Renal failure [None]
  - Dehydration [None]
  - Electroencephalogram abnormal [None]
  - Serotonin syndrome [None]
  - Drug interaction [None]
